FAERS Safety Report 6959616-0 (Version None)
Quarter: 2010Q3

REPORT INFORMATION
  Report Type: 
  Country: None (occurrence: None)
  Receive Date: 20100823
  Receipt Date: 20100702
  Transmission Date: 20110219
  Serious: No
  Sender: FDA-Public Use
  Company Number: 8045531

PATIENT
  Sex: Female
  Weight: 81.8 kg

DRUGS (4)
  1. CIMZIA [Suspect]
     Indication: CROHN'S DISEASE
     Dosage: (SUBCUTANEOUS)
     Route: 058
     Dates: start: 20090415
  2. PREDNISONE [Concomitant]
  3. FLEXERIL [Concomitant]
  4. SULFASALAZINE [Concomitant]

REACTIONS (2)
  - HEADACHE [None]
  - INFECTION [None]
